FAERS Safety Report 17037857 (Version 1)
Quarter: 2019Q4

REPORT INFORMATION
  Report Type: Spontaneous
  Country: KR (occurrence: KR)
  Receive Date: 20191115
  Receipt Date: 20191115
  Transmission Date: 20200122
  Serious: Yes (Hospitalization)
  Sender: FDA-Public Use
  Company Number: KR-MEITHEAL PHARMACEUTICALS-2019MHL00013

PATIENT

DRUGS (1)
  1. PHENYLEPHRINE [Suspect]
     Active Substance: PHENYLEPHRINE HYDROCHLORIDE
     Indication: ISCHAEMIC STROKE
     Dosage: 1.2 MG PER HOUR UNTIL A 20% INCREASE IN SBP WAS ACHIEVED
     Route: 042

REACTIONS (1)
  - Cerebral haemorrhage [Unknown]
